FAERS Safety Report 6647640-7 (Version None)
Quarter: 2010Q1

REPORT INFORMATION
  Report Type: 
  Country: None (occurrence: None)
  Receive Date: 20100323
  Receipt Date: 20100323
  Transmission Date: 20100710
  Serious: Yes (Other)
  Sender: FDA-Public Use
  Company Number: None

PATIENT
  Age: 28 Year
  Sex: Female
  Weight: 65.7716 kg

DRUGS (2)
  1. DEPO-PROVERA [Suspect]
     Indication: CONTRACEPTION
     Dosage: 1MG Q12WEEKS IM
     Route: 030
     Dates: start: 20081209, end: 20090825
  2. DEPO-PROVERA [Suspect]
     Indication: CONTRACEPTION
     Dosage: 1MG Q12WEEKS IM
     Route: 030
     Dates: start: 20080902

REACTIONS (2)
  - ABDOMINAL PAIN [None]
  - REFUSAL OF TREATMENT BY PATIENT [None]
